FAERS Safety Report 6893125-2 (Version None)
Quarter: 2010Q3

REPORT INFORMATION
  Report Type: 
  Country: None (occurrence: None)
  Receive Date: 20100731
  Receipt Date: 20090602
  Transmission Date: 20110219
  Serious: Yes (Other)
  Sender: FDA-Public Use
  Company Number: US-PFIZER INC-2009193025

PATIENT
  Sex: Female
  Weight: 102.49 kg

DRUGS (18)
  1. NEURONTIN [Suspect]
     Indication: PAIN IN EXTREMITY
     Dosage: 100 MG, 1X/DAY
     Dates: start: 20080507, end: 20080507
  2. PLAVIX [Concomitant]
     Dosage: UNK
  3. NEFAZODONE HCL [Concomitant]
     Dosage: UNK
  4. DARVOCET [Concomitant]
     Dosage: UNK
  5. POTASSIUM [Concomitant]
     Dosage: UNK
  6. ACTOS [Concomitant]
     Dosage: UNK
  7. COMBIVENT [Concomitant]
     Dosage: UNK
  8. TRICOR [Concomitant]
     Dosage: UNK
  9. LIPITOR [Concomitant]
     Dosage: UNK
  10. LEVOXYL [Concomitant]
     Dosage: UNK
  11. PEPCID [Concomitant]
     Dosage: UNK
  12. BUSPAR [Concomitant]
     Dosage: UNK
  13. LISINOPRIL [Concomitant]
     Dosage: UNK
  14. ALLOPURINOL [Concomitant]
     Dosage: UNK
  15. THEOPHYLLINE [Concomitant]
     Dosage: UNK
  16. ALLEGRA [Concomitant]
     Dosage: UNK
  17. ALL OTHER THERAPEUTIC PRODUCTS [Concomitant]
     Dosage: UNK
  18. DOXYCYCLINE [Concomitant]
     Dosage: UNK

REACTIONS (2)
  - FEELING ABNORMAL [None]
  - PALPITATIONS [None]
